FAERS Safety Report 7968349-3 (Version None)
Quarter: 2011Q4

REPORT INFORMATION
  Report Type: 
  Country: None (occurrence: None)
  Receive Date: 20111209
  Receipt Date: 20111114
  Transmission Date: 20120403
  Serious: Yes (Hospitalization)
  Sender: FDA-Public Use
  Company Number: US-BAYER-2011-076268

PATIENT
  Age: 25 Year
  Sex: Female

DRUGS (8)
  1. DROSPIRENONE AND ETHINYL ESTRADIOL [Suspect]
     Indication: ORAL CONTRACEPTION
  2. ZELNORM [Concomitant]
  3. DAILY VITAMINS [Concomitant]
  4. IBUPROFEN [Concomitant]
     Dosage: UNK UNK, PRN
     Route: 048
     Dates: start: 20000101, end: 20090101
  5. MULTI-VITAMIN [Concomitant]
     Dosage: UNK UNK, CONT
     Route: 048
  6. FIBER [Concomitant]
  7. STOOL SOFTENER [Concomitant]
  8. YASMIN [Suspect]
     Indication: ORAL CONTRACEPTION
     Dosage: UNK
     Dates: start: 20020901, end: 20060801

REACTIONS (2)
  - THROMBOSIS [None]
  - PAIN IN EXTREMITY [None]
